FAERS Safety Report 7945219-8 (Version None)
Quarter: 2011Q4

REPORT INFORMATION
  Report Type: 
  Country: None (occurrence: None)
  Receive Date: 20111129
  Receipt Date: 20110422
  Transmission Date: 20120403
  Serious: No
  Sender: FDA-Public Use
  Company Number: US-GLAXOSMITHKLINE-A0924238A

PATIENT
  Age: 64 Year
  Sex: Female

DRUGS (10)
  1. FLONASE [Concomitant]
  2. EVISTA [Concomitant]
  3. NEXIUM [Concomitant]
  4. PROMETHAZINE [Concomitant]
  5. FIORICET [Concomitant]
  6. CLARITIN-D [Concomitant]
  7. ATENOLOL [Concomitant]
  8. FLOVENT [Suspect]
     Indication: ASTHMA
     Dosage: 1PUFF TWICE PER DAY
     Route: 055
     Dates: start: 20100301, end: 20100301
  9. VENTOLIN HFA [Concomitant]
  10. EXCEDRIN (MIGRAINE) [Concomitant]

REACTIONS (2)
  - WHEEZING [None]
  - DYSPNOEA [None]
